FAERS Safety Report 8603106-6 (Version None)
Quarter: 2012Q3

REPORT INFORMATION
  Report Type: 
  Country: None (occurrence: None)
  Receive Date: 20120817
  Receipt Date: 20111114
  Transmission Date: 20120928
  Serious: No
  Sender: FDA-Public Use
  Company Number: US-GLAXOSMITHKLINE-A0952961A

PATIENT
  Age: 44 Year
  Sex: Female

DRUGS (1)
  1. TAGAMET HB 200 [Suspect]
     Indication: GASTROOESOPHAGEAL REFLUX DISEASE
     Dates: start: 20111111

REACTIONS (4)
  - HYPERSENSITIVITY [None]
  - HEADACHE [None]
  - ABDOMINAL DISCOMFORT [None]
  - DIARRHOEA [None]
